FAERS Safety Report 8286678-3 (Version None)
Quarter: 2012Q2

REPORT INFORMATION
  Report Type: 
  Country: None (occurrence: None)
  Receive Date: 20120410
  Receipt Date: 20120308
  Transmission Date: 20120825
  Serious: Yes (Death)
  Sender: FDA-Public Use
  Company Number: US-REGULIS-0041

PATIENT
  Age: 6 Year
  Sex: Female

DRUGS (7)
  1. FOSCARNET [Suspect]
     Indication: CYTOMEGALOVIRUS VIRAEMIA
     Dosage: 90, MG/KG MILLIGRAM(S)/KILOGRAM, ,?, UNSPECIFIED INTERVAL
  2. METHYLPREDNISOLONE - CREAM / METHYLPREDNISOLONE [Concomitant]
  3. GANCICLOVIR [Concomitant]
  4. CIDOFOVIR - CONCENTRATE FOR SOLUTION FOR INFUSION / CIDOFOVIR [Concomitant]
  5. MONOCLONAL ANTIBODIES, GRANULOCYTE [Concomitant]
  6. GANCICLOVIR [Concomitant]
  7. FOSCARNET [Suspect]
     Indication: CYTOMEGALOVIRUS VIRAEMIA
     Dosage: 90, MG/KG MILLIGRAM(S)/KILOGRAM, ,?, UNSPECIFIED INTERVAL

REACTIONS (3)
  - PNEUMONIA [None]
  - HYDROCEPHALUS [None]
  - FUNGAL SEPSIS [None]
